FAERS Safety Report 8605252 (Version 15)
Quarter: 2015Q2

REPORT INFORMATION
  Report Type: Report from Study
  Country: CA (occurrence: CA)
  Receive Date: 20120608
  Receipt Date: 20150410
  Transmission Date: 20150821
  Serious: Yes (Other)
  Sender: FDA-Public Use
  Company Number: CA-ROCHE-1075675

PATIENT
  Age: 67 Year
  Sex: Female
  Weight: 88 kg

DRUGS (12)
  1. ACTEMRA [Suspect]
     Active Substance: TOCILIZUMAB
     Route: 042
     Dates: start: 20120927
  2. FOLIC ACID. [Concomitant]
     Active Substance: FOLIC ACID
  3. ACTONEL [Concomitant]
     Active Substance: RISEDRONATE SODIUM
  4. COUMADIN [Concomitant]
     Active Substance: WARFARIN SODIUM
     Indication: PHLEBITIS
  5. ACTEMRA [Suspect]
     Active Substance: TOCILIZUMAB
     Route: 042
     Dates: start: 20141104
  6. ACTEMRA [Suspect]
     Active Substance: TOCILIZUMAB
     Route: 042
     Dates: start: 20141204
  7. BISOPROLOL [Concomitant]
     Active Substance: BISOPROLOL
  8. HYDROCHLOROTHIAZIDE. [Concomitant]
     Active Substance: HYDROCHLOROTHIAZIDE
  9. METHOTREXATE [Concomitant]
     Active Substance: METHOTREXATE
  10. PREDNISONE. [Concomitant]
     Active Substance: PREDNISONE
  11. ACTEMRA [Suspect]
     Active Substance: TOCILIZUMAB
     Indication: POLYMYALGIA RHEUMATICA
     Route: 042
     Dates: start: 20110922
  12. ASPIRIN. [Concomitant]
     Active Substance: ASPIRIN

REACTIONS (21)
  - Mouth ulceration [Recovering/Resolving]
  - Off label use [Unknown]
  - Nasal discharge discolouration [Unknown]
  - Weight decreased [Not Recovered/Not Resolved]
  - Musculoskeletal stiffness [Not Recovered/Not Resolved]
  - Abdominal pain [Recovered/Resolved]
  - Weight increased [Not Recovered/Not Resolved]
  - Sleep apnoea syndrome [Unknown]
  - Poor venous access [Recovered/Resolved]
  - Tooth disorder [Unknown]
  - Fatigue [Not Recovered/Not Resolved]
  - Nasopharyngitis [Not Recovered/Not Resolved]
  - Oedema peripheral [Not Recovered/Not Resolved]
  - Oedema peripheral [Unknown]
  - Blood cholesterol increased [Unknown]
  - Peripheral swelling [Unknown]
  - Skin discolouration [Not Recovered/Not Resolved]
  - Paraesthesia [Unknown]
  - Phlebitis [Recovering/Resolving]
  - Balance disorder [Unknown]
  - Arthritis [Unknown]

NARRATIVE: CASE EVENT DATE: 20120308
